FAERS Safety Report 12663444 (Version 1)
Quarter: 2016Q3

REPORT INFORMATION
  Report Type: Spontaneous
  Country: GB (occurrence: GB)
  Receive Date: 20160818
  Receipt Date: 20160818
  Transmission Date: 20161109
  Serious: Yes (Other)
  Sender: FDA-Public Use
  Company Number: GB-JNJFOC-20160808285

PATIENT

DRUGS (2)
  1. PREZISTA [Suspect]
     Active Substance: DARUNAVIR ETHANOLATE
     Indication: HIV INFECTION
     Route: 065
  2. RITONAVIR. [Suspect]
     Active Substance: RITONAVIR
     Indication: HIV INFECTION
     Route: 065

REACTIONS (10)
  - Product use issue [Unknown]
  - Hypertriglyceridaemia [Unknown]
  - Neutropenia [Unknown]
  - Dyslipidaemia [Unknown]
  - Gastrointestinal toxicity [Unknown]
  - Incorrect dose administered [Unknown]
  - Hyperbilirubinaemia [Unknown]
  - Hypercholesterolaemia [Unknown]
  - Treatment noncompliance [Unknown]
  - Off label use [Unknown]
